FAERS Safety Report 20743445 (Version 2)
Quarter: 2022Q2

REPORT INFORMATION
  Report Type: Report from Study
  Country: US (occurrence: US)
  Receive Date: 20220425
  Receipt Date: 20220523
  Transmission Date: 20220720
  Serious: Yes (Hospitalization, Other)
  Sender: FDA-Public Use
  Company Number: US-ABBVIE-22K-163-4368791-00

PATIENT
  Sex: Female

DRUGS (1)
  1. HUMIRA [Suspect]
     Active Substance: ADALIMUMAB
     Indication: Crohn^s disease
     Dosage: CITRATE FREE
     Route: 058

REACTIONS (5)
  - Renal disorder [Recovering/Resolving]
  - COVID-19 [Recovering/Resolving]
  - Urinary tract infection [Recovering/Resolving]
  - Gait inability [Recovering/Resolving]
  - Hallucination [Recovering/Resolving]
